FAERS Safety Report 6808821-2 (Version None)
Quarter: 2010Q2

REPORT INFORMATION
  Report Type: 
  Country: None (occurrence: None)
  Receive Date: 20100630
  Receipt Date: 20091022
  Transmission Date: 20101027
  Serious: Yes (Other)
  Sender: FDA-Public Use
  Company Number: US-PFIZER INC-2009265223

PATIENT

DRUGS (1)
  1. ZYVOX [Suspect]

REACTIONS (3)
  - BONE MARROW FAILURE [None]
  - METABOLIC ACIDOSIS [None]
  - SEROTONIN SYNDROME [None]
